FAERS Safety Report 8467369 (Version 2)
Quarter: 2012Q4

REPORT INFORMATION
  Report Type: 
  Country: FR (occurrence: FR)
  Receive Date: 20120320
  Receipt Date: 20120905
  Transmission Date: 20130627
  Serious: Yes (Hospitalization)
  Sender: FDA-Public Use
  Company Number: FR-ELI_LILLY_AND_COMPANY-FR201203002141

PATIENT
  Age: 83 Year
  Sex: Female

DRUGS (9)
  1. FORSTEO [Suspect]
     Indication: OSTEOPOROSIS
     Dosage: 20 ug, qd
     Route: 058
     Dates: start: 20110930
  2. FORSTEO [Suspect]
     Dosage: 20 ug, qd
  3. CRESTOR [Concomitant]
  4. ATENOLOL [Concomitant]
  5. PLAVIX [Concomitant]
  6. TANAKAN [Concomitant]
  7. SERESTA [Concomitant]
  8. IXPRIM [Concomitant]
  9. DAFALGAN [Concomitant]

REACTIONS (2)
  - Glucose tolerance impaired [Not Recovered/Not Resolved]
  - Headache [Not Recovered/Not Resolved]
